FAERS Safety Report 12879544 (Version 5)
Quarter: 2016Q4

REPORT INFORMATION
  Report Type: Spontaneous
  Country: US (occurrence: US)
  Receive Date: 20161025
  Receipt Date: 20161129
  Transmission Date: 20170207
  Serious: Yes (Death, Hospitalization, Other)
  Sender: FDA-Public Use
  Company Number: US-ACTELION-A-US2016-144421

PATIENT
  Age: 72 Year
  Sex: Female

DRUGS (15)
  1. SYNTHROID [Concomitant]
     Active Substance: LEVOTHYROXINE SODIUM
  2. VITAMIN C [Concomitant]
     Active Substance: ASCORBIC ACID
  3. ACTONEL [Concomitant]
     Active Substance: RISEDRONATE SODIUM
  4. VENTOLIN [Concomitant]
     Active Substance: ALBUTEROL SULFATE
  5. VELETRI [Suspect]
     Active Substance: EPOPROSTENOL
     Indication: PULMONARY ARTERIAL HYPERTENSION
     Dosage: 37 NG/KG, PER MIN
     Route: 042
     Dates: start: 20140226, end: 20161028
  6. FENTANYL. [Concomitant]
     Active Substance: FENTANYL
  7. METOLAZONE. [Concomitant]
     Active Substance: METOLAZONE
  8. OPSUMIT [Suspect]
     Active Substance: MACITENTAN
     Indication: PULMONARY ARTERIAL HYPERTENSION
     Dosage: 10 MG, QD
     Route: 048
     Dates: start: 20160913, end: 20161028
  9. LASIX [Concomitant]
     Active Substance: FUROSEMIDE
  10. ADCIRCA [Concomitant]
     Active Substance: TADALAFIL
     Dosage: 40 MG, QD
     Dates: start: 201004, end: 20161028
  11. POTASSIUM [Concomitant]
     Active Substance: POTASSIUM
  12. GABAPENTIN. [Concomitant]
     Active Substance: GABAPENTIN
  13. ALDACTONE [Concomitant]
     Active Substance: SPIRONOLACTONE
  14. ELIQUIS [Concomitant]
     Active Substance: APIXABAN
  15. PROMETHAZINE [Concomitant]
     Active Substance: PROMETHAZINE\PROMETHAZINE HYDROCHLORIDE

REACTIONS (12)
  - Fluid overload [Fatal]
  - Right ventricular failure [Fatal]
  - Ear infection [Unknown]
  - Urinary tract infection [Unknown]
  - Anaemia [Unknown]
  - Syncope [Unknown]
  - Upper respiratory tract infection [Unknown]
  - Feeling abnormal [Unknown]
  - Blood count abnormal [Unknown]
  - Loss of consciousness [Unknown]
  - Pulmonary hypertension [Fatal]
  - Transfusion [Unknown]

NARRATIVE: CASE EVENT DATE: 201610
